FAERS Safety Report 16109917 (Version 1)
Quarter: 2019Q1

REPORT INFORMATION
  Report Type: Spontaneous
  Country: US (occurrence: US)
  Receive Date: 20190325
  Receipt Date: 20190325
  Transmission Date: 20190418
  Serious: No
  Sender: FDA-Public Use
  Company Number: US-AUROBINDO-AUR-APL-2018-041853

PATIENT
  Sex: Female
  Weight: 68 kg

DRUGS (1)
  1. GABAPENTIN CAPSULES 300 MG [Suspect]
     Active Substance: GABAPENTIN
     Indication: TRIGEMINAL NEURALGIA
     Dosage: 600 MG AND 900 MG AS NEEDED AT NIGHT
     Route: 048

REACTIONS (3)
  - Product substitution issue [Unknown]
  - Drug ineffective [Recovered/Resolved]
  - Somnolence [Unknown]
